FAERS Safety Report 9631370 (Version 2)
Quarter: 2013Q4

REPORT INFORMATION
  Report Type: Spontaneous
  Country: US (occurrence: US)
  Receive Date: 20131018
  Receipt Date: 20131126
  Transmission Date: 20140711
  Serious: No
  Sender: FDA-Public Use
  Company Number: US-009507513-1310USA008140

PATIENT
  Age: 31 Year
  Sex: Female
  Weight: 52.15 kg

DRUGS (5)
  1. VICTRELIS [Suspect]
     Indication: HEPATITIS C
     Dosage: 4 CAPSULES THREE TIMES A DAY
     Route: 048
     Dates: start: 20131009, end: 201310
  2. PEGINTRON [Suspect]
     Dosage: UNK
     Dates: start: 2013
  3. REBETOL [Suspect]
     Dosage: UNK
     Dates: start: 2013
  4. IBUPROFEN [Concomitant]
  5. OXYCODONE [Concomitant]

REACTIONS (4)
  - Oropharyngeal pain [Recovered/Resolved]
  - Dyspnoea [Recovered/Resolved]
  - Throat irritation [Recovered/Resolved]
  - Pharyngeal erythema [Recovered/Resolved]
